FAERS Safety Report 11881075 (Version 1)
Quarter: 2015Q4

REPORT INFORMATION
  Report Type: Spontaneous
  Country: US (occurrence: US)
  Receive Date: 20151230
  Receipt Date: 20151230
  Transmission Date: 20160305
  Serious: Yes (Hospitalization)
  Sender: FDA-Public Use
  Company Number: US-DSJP-DSU-2015-139922

PATIENT

DRUGS (8)
  1. PROGESTERONE. [Concomitant]
     Active Substance: PROGESTERONE
     Indication: PRODUCT USED FOR UNKNOWN INDICATION
  2. RABEPRAZOLE [Concomitant]
     Active Substance: RABEPRAZOLE
     Indication: GASTRIC ULCER
  3. FLUTICASONE [Concomitant]
     Active Substance: FLUTICASONE\FLUTICASONE PROPIONATE
     Indication: PRODUCT USED FOR UNKNOWN INDICATION
  4. BENICAR [Suspect]
     Active Substance: OLMESARTAN MEDOXOMIL
     Indication: HYPERTENSION
     Dosage: 20 MG, UNK
     Dates: start: 2008, end: 2015
  5. SUCRALFATE. [Concomitant]
     Active Substance: SUCRALFATE
     Indication: GASTRIC ULCER
  6. BENICAR HCT [Suspect]
     Active Substance: HYDROCHLOROTHIAZIDE\OLMESARTAN MEDOXOMIL
     Indication: HYPERTENSION
     Dosage: UNK
     Dates: start: 2012, end: 2014
  7. NEXIUM [Concomitant]
     Active Substance: ESOMEPRAZOLE MAGNESIUM
     Indication: GASTRIC ULCER
  8. ATENOLOL. [Concomitant]
     Active Substance: ATENOLOL
     Indication: PRODUCT USED FOR UNKNOWN INDICATION

REACTIONS (6)
  - Small intestinal obstruction [Unknown]
  - Crohn^s disease [Unknown]
  - Diverticulitis [Unknown]
  - Malabsorption [Unknown]
  - Gastrointestinal motility disorder [None]
  - Irritable bowel syndrome [Unknown]

NARRATIVE: CASE EVENT DATE: 20150305
